FAERS Safety Report 16299768 (Version 3)
Quarter: 2019Q3

REPORT INFORMATION
  Report Type: Report from Study
  Country: BR (occurrence: BR)
  Receive Date: 20190510
  Receipt Date: 20190829
  Transmission Date: 20191004
  Serious: Yes (Life-Threatening, Other)
  Sender: FDA-Public Use
  Company Number: PHHY2019BR106052

PATIENT
  Sex: Female

DRUGS (2)
  1. ENTRESTO [Suspect]
     Active Substance: SACUBITRIL\VALSARTAN
     Dosage: 1 DF (97 MG SACUBITRIL AND 103 MG VALSARTAN), UNK
     Route: 065
     Dates: start: 20190617
  2. ENTRESTO [Suspect]
     Active Substance: SACUBITRIL\VALSARTAN
     Indication: PRODUCT USED FOR UNKNOWN INDICATION
     Dosage: 1 DF (SACUBITRIL 24 MG/ VALSARTAN 26 MG), Q12H
     Route: 065

REACTIONS (18)
  - Somnolence [Unknown]
  - Visual impairment [Unknown]
  - Sluggishness [Unknown]
  - Apparent death [Unknown]
  - Nausea [Unknown]
  - Blindness [Unknown]
  - Sleep disorder [Unknown]
  - Fatigue [Unknown]
  - Systemic lupus erythematosus [Unknown]
  - Lupus pleurisy [Unknown]
  - Feeling abnormal [Unknown]
  - Headache [Unknown]
  - Dyspnoea [Unknown]
  - Retching [Unknown]
  - Blood pressure decreased [Unknown]
  - Asthenia [Unknown]
  - Cardiac dysfunction [Unknown]
  - Chest pain [Unknown]
